FAERS Safety Report 19584128 (Version 3)
Quarter: 2022Q2

REPORT INFORMATION
  Report Type: Report from Study
  Country: US (occurrence: None)
  Receive Date: 20210720
  Receipt Date: 20220405
  Transmission Date: 20220721
  Serious: Yes (Other)
  Sender: FDA-Public Use
  Company Number: US-MERCK HEALTHCARE KGAA-9251968

PATIENT
  Age: 57 Year
  Sex: Female

DRUGS (1)
  1. REBIF [Suspect]
     Active Substance: INTERFERON BETA-1A
     Indication: Product used for unknown indication
     Route: 058
     Dates: start: 20110626

REACTIONS (5)
  - Breast cancer [Unknown]
  - Nausea [Unknown]
  - Decreased appetite [Unknown]
  - Vitamin D decreased [Unknown]
  - Fatigue [Unknown]

NARRATIVE: CASE EVENT DATE: 20210101
